FAERS Safety Report 7929108-0 (Version None)
Quarter: 2011Q4

REPORT INFORMATION
  Report Type: 
  Country: None (occurrence: None)
  Receive Date: 20111119
  Receipt Date: 20111110
  Transmission Date: 20120403
  Serious: Yes (Other)
  Sender: FDA-Public Use
  Company Number: AT-ASTRAZENECA-2011SE66247

PATIENT
  Age: 40 Year
  Sex: Female

DRUGS (6)
  1. SOMNUBENE [Concomitant]
     Indication: SLEEP DISORDER
     Dosage: 20
     Route: 065
     Dates: start: 20111004
  2. CRESTOR [Interacting]
     Indication: HYPERLIPIDAEMIA
     Dosage: 10 MG LONG TERM ADMINISTRATION
     Route: 048
  3. SEROQUEL XR [Concomitant]
     Indication: MANIA
     Dosage: 300 MG
     Route: 048
     Dates: start: 20111010
  4. OXAZEPAM [Concomitant]
     Indication: TENSION
     Dosage: 100-200 MG
     Route: 065
  5. GEMFIBROZIL [Interacting]
     Indication: HYPERLIPIDAEMIA
     Dosage: 450 MG LONG TERM ADMINISTRATION
     Route: 065
  6. SYCREST [Suspect]
     Indication: MANIA
     Route: 048
     Dates: start: 20110916, end: 20111012

REACTIONS (4)
  - MYOGLOBIN BLOOD INCREASED [None]
  - BLOOD CREATINE PHOSPHOKINASE INCREASED [None]
  - RHABDOMYOLYSIS [None]
  - DRUG INTERACTION [None]
